FAERS Safety Report 7556974-3 (Version None)
Quarter: 2011Q2

REPORT INFORMATION
  Report Type: 
  Country: None (occurrence: None)
  Receive Date: 20110620
  Receipt Date: 20110609
  Transmission Date: 20111010
  Serious: No
  Sender: FDA-Public Use
  Company Number: PHHY2010IT58947

PATIENT
  Sex: Male

DRUGS (6)
  1. PREDNISONE [Concomitant]
     Dosage: 12.5 MG,
     Route: 048
  2. PREDNISONE [Concomitant]
     Dosage: 25 MG,
     Route: 048
     Dates: start: 20100609, end: 20100615
  3. LANSOX [Concomitant]
     Dosage: 60 MG,
     Route: 048
     Dates: start: 20100429, end: 20100718
  4. PREDNISONE [Concomitant]
     Dosage: 12.5 MG, UNK
     Route: 048
     Dates: start: 20100616, end: 20100718
  5. TASIGNA [Suspect]
     Indication: CHRONIC MYELOID LEUKAEMIA
     Dosage: 800 MG PER DAY
     Route: 048
     Dates: start: 20100505
  6. TASIGNA [Suspect]
     Dosage: 800 MG PER DAY
     Route: 048

REACTIONS (1)
  - PANCYTOPENIA [None]
